FAERS Safety Report 5400486-X (Version None)
Quarter: 2007Q3

REPORT INFORMATION
  Report Type: 
  Country: None (occurrence: None)
  Receive Date: 20070725
  Receipt Date: 20070719
  Transmission Date: 20080115
  Serious: Yes (Hospitalization)
  Sender: FDA-Public Use
  Company Number: 20070177 /

PATIENT
  Age: 30 Year
  Sex: Female

DRUGS (1)
  1. VENOFER [Suspect]
     Indication: ANAEMIA
     Dosage: 200 MG INTRAVENOUS
     Route: 042
     Dates: start: 20070513

REACTIONS (2)
  - EPISTAXIS [None]
  - HEADACHE [None]
